FAERS Safety Report 22310907 (Version 2)
Quarter: 2023Q2

REPORT INFORMATION
  Report Type: Spontaneous
  Country: US (occurrence: US)
  Receive Date: 20230511
  Receipt Date: 20230519
  Transmission Date: 20230722
  Serious: Yes (Other)
  Sender: FDA-Public Use
  Company Number: US-APIL-2314120US

PATIENT
  Weight: 2.115 kg

DRUGS (3)
  1. URSODIOL [Suspect]
     Active Substance: URSODIOL
     Indication: Exposure during pregnancy
     Dosage: 500 MG, BID
     Route: 064
  2. FENOFIBRATE [Suspect]
     Active Substance: FENOFIBRATE
     Indication: Exposure during pregnancy
     Dosage: 160 MG, QD
     Route: 064
  3. URSODIOL [Suspect]
     Active Substance: URSODIOL
     Indication: Exposure during pregnancy
     Dosage: 300 MG, TID
     Route: 064

REACTIONS (2)
  - Premature baby [Unknown]
  - Low birth weight baby [Unknown]
